FAERS Safety Report 11827619 (Version 1)
Quarter: 2015Q4

REPORT INFORMATION
  Report Type: Spontaneous
  Country: US (occurrence: US)
  Receive Date: 20151211
  Receipt Date: 20151211
  Transmission Date: 20160305
  Serious: Yes (Other)
  Sender: FDA-Public Use
  Company Number: US-WATSON-2015-17567

PATIENT
  Age: 34 Year
  Sex: Female

DRUGS (1)
  1. LILETTA [Suspect]
     Active Substance: LEVONORGESTREL
     Indication: PRODUCT USED FOR UNKNOWN INDICATION
     Dosage: UNK, UNKNOWN
     Route: 015
     Dates: start: 20150603, end: 20150714

REACTIONS (3)
  - Uterine perforation [Unknown]
  - Pain [Recovered/Resolved]
  - Uterine spasm [Recovered/Resolved]

NARRATIVE: CASE EVENT DATE: 20150603
